FAERS Safety Report 12415342 (Version 2)
Quarter: 2016Q4

REPORT INFORMATION
  Report Type: Spontaneous
  Country: US (occurrence: US)
  Receive Date: 20160530
  Receipt Date: 20161107
  Transmission Date: 20170207
  Serious: No
  Sender: FDA-Public Use
  Company Number: US-PFIZER INC-2016249669

PATIENT
  Age: 77 Year
  Sex: Female

DRUGS (3)
  1. CHANTIX [Suspect]
     Active Substance: VARENICLINE TARTRATE
     Dosage: 1 MG, 2X/DAY
     Route: 048
     Dates: start: 20161020
  2. LYRICA [Suspect]
     Active Substance: PREGABALIN
     Dosage: 150 MG, 2X/DAY, (TWO CAPSULSES  75MG TWICE DAILY)
     Route: 048
     Dates: start: 20161020
  3. PREMARIN [Suspect]
     Active Substance: ESTROGENS, CONJUGATED
     Indication: DYSPAREUNIA
     Dosage: 0.5 G, 2X/WEEK
     Route: 067
     Dates: start: 20161020

REACTIONS (2)
  - Weight increased [Unknown]
  - Weight loss poor [Unknown]
